FAERS Safety Report 12366179 (Version 4)
Quarter: 2016Q3

REPORT INFORMATION
  Report Type: Spontaneous
  Country: US (occurrence: US)
  Receive Date: 20160513
  Receipt Date: 20160715
  Transmission Date: 20161109
  Serious: No
  Sender: FDA-Public Use
  Company Number: US-PFIZER INC-2016227327

PATIENT
  Age: 51 Year
  Sex: Male

DRUGS (3)
  1. MORPHINE SULFATE. [Suspect]
     Active Substance: MORPHINE SULFATE
     Dosage: 60 MG, AS NEEDED (EVERY 12 HOURS AS NEEDED)
     Route: 048
  2. MORPHINE SULFATE. [Suspect]
     Active Substance: MORPHINE SULFATE
     Indication: NEURALGIA
     Dosage: 30 MG, 3X/DAY
     Route: 048
     Dates: start: 2011
  3. MORPHINE SULFATE. [Suspect]
     Active Substance: MORPHINE SULFATE
     Dosage: 60 MG, 2X/DAY
     Route: 048

REACTIONS (3)
  - Fatigue [Unknown]
  - Drug effect incomplete [Unknown]
  - Product use issue [Unknown]
